FAERS Safety Report 15488264 (Version 1)
Quarter: 2018Q4

REPORT INFORMATION
  Report Type: Spontaneous
  Country: US (occurrence: US)
  Receive Date: 20181011
  Receipt Date: 20181011
  Transmission Date: 20190205
  Serious: No
  Sender: FDA-Public Use
  Company Number: US-RISING PHARMACEUTICALS, INC.-2018RIS00123

PATIENT
  Sex: Male
  Weight: 74.83 kg

DRUGS (7)
  1. PROCTOZONE-HC [Suspect]
     Active Substance: HYDROCORTISONE
     Indication: HAEMORRHOIDS
     Dosage: 1/2 TO 3/4 INCH, 3 TO 4X/DAY
     Route: 061
     Dates: start: 201802, end: 20180304
  2. PRESCRIPTION SHAMPOO [Concomitant]
  3. SIMVASTATIN. [Concomitant]
     Active Substance: SIMVASTATIN
  4. DIAZEPAM. [Concomitant]
     Active Substance: DIAZEPAM
  5. LEVOTHYROXINE. [Concomitant]
     Active Substance: LEVOTHYROXINE
  6. LOSARTAN. [Concomitant]
     Active Substance: LOSARTAN
  7. OXYCODONE [Concomitant]
     Active Substance: OXYCODONE

REACTIONS (6)
  - Application site erythema [Not Recovered/Not Resolved]
  - Drug ineffective [Recovered/Resolved]
  - Product substitution issue [Not Recovered/Not Resolved]
  - Haemorrhoids [Not Recovered/Not Resolved]
  - Discomfort [Recovered/Resolved]
  - Application site pain [Not Recovered/Not Resolved]

NARRATIVE: CASE EVENT DATE: 2018
